FAERS Safety Report 20455774 (Version 1)
Quarter: 2022Q1

REPORT INFORMATION
  Report Type: Spontaneous
  Country: US (occurrence: US)
  Receive Date: 20220210
  Receipt Date: 20220210
  Transmission Date: 20220423
  Serious: Yes (Other)
  Sender: FDA-Public Use
  Company Number: US-MYLANLABS-2022M1011220

PATIENT
  Age: 68 Year
  Sex: Female

DRUGS (6)
  1. VANCOMYCIN [Suspect]
     Active Substance: VANCOMYCIN
     Indication: Prophylaxis
     Dosage: INJECTION; 1.0MG/0.1ML
  2. PREDNISONE [Suspect]
     Active Substance: PREDNISONE
     Indication: Eye inflammation
     Dosage: 60 MILLIGRAM, QD
     Route: 048
  3. PREDNISONE [Suspect]
     Active Substance: PREDNISONE
     Dosage: 20 MILLIGRAM, QD, DOSE TAPERED WEEKLY UNTIL IT WAS REDUCED TO 20MG
     Route: 048
  4. PREDNISOLONE ACETATE [Concomitant]
     Active Substance: PREDNISOLONE ACETATE
     Indication: Haemorrhagic occlusive retinal vasculitis
     Dosage: UNK, QID
     Route: 061
  5. BROMFENAC [Concomitant]
     Active Substance: BROMFENAC SODIUM
     Indication: Haemorrhagic occlusive retinal vasculitis
     Dosage: UNK, QD
     Route: 061
  6. VALACYCLOVIR HYDROCHLORIDE [Concomitant]
     Active Substance: VALACYCLOVIR HYDROCHLORIDE
     Indication: Haemorrhagic occlusive retinal vasculitis
     Dosage: 2 GRAM, TID, THREE TIMES A DAY
     Route: 048

REACTIONS (5)
  - Haemorrhagic occlusive retinal vasculitis [Recovering/Resolving]
  - Rebound effect [Recovering/Resolving]
  - Eye inflammation [Recovering/Resolving]
  - Adverse drug reaction [Unknown]
  - Off label use [Unknown]
